FAERS Safety Report 17279227 (Version 1)
Quarter: 2020Q1

REPORT INFORMATION
  Report Type: Spontaneous
  Country: US (occurrence: US)
  Receive Date: 20200116
  Receipt Date: 20200116
  Transmission Date: 20200409
  Serious: Yes (Hospitalization)
  Sender: FDA-Public Use
  Company Number: US-FRESENIUS KABI-FK202000475

PATIENT
  Age: 63 Year
  Sex: Female

DRUGS (1)
  1. SODIUM CHLORIDE (MANUFACTURER UNKNOWN) [Suspect]
     Active Substance: SODIUM CHLORIDE
     Indication: BRONCHOALVEOLAR LAVAGE
     Dosage: 100 ML TOTAL
     Route: 065

REACTIONS (2)
  - Pleural effusion [Recovered/Resolved]
  - Off label use [Recovered/Resolved]
